FAERS Safety Report 11892486 (Version 2)
Quarter: 2016Q2

REPORT INFORMATION
  Report Type: Spontaneous
  Country: US (occurrence: US)
  Receive Date: 20160106
  Receipt Date: 20160421
  Transmission Date: 20160815
  Serious: No
  Sender: FDA-Public Use
  Company Number: US-JNJFOC-20150614870

PATIENT
  Sex: Male
  Weight: 68.04 kg

DRUGS (1)
  1. NIZORAL [Suspect]
     Active Substance: KETOCONAZOLE
     Indication: ANTIFUNGAL PROPHYLAXIS
     Dosage: SEVERAL TIMES PER WEEK
     Route: 061

REACTIONS (2)
  - Therapeutic response decreased [Unknown]
  - Expired product administered [Recovered/Resolved]

NARRATIVE: CASE EVENT DATE: 2015
